FAERS Safety Report 12919424 (Version 1)
Quarter: 2016Q4

REPORT INFORMATION
  Report Type: Report from Study
  Country: CN (occurrence: CN)
  Receive Date: 20161108
  Receipt Date: 20161108
  Transmission Date: 20170207
  Serious: Yes (Hospitalization)
  Sender: FDA-Public Use
  Company Number: CN-ROCHE-1845823

PATIENT
  Age: 50 Year
  Sex: Female
  Weight: 53 kg

DRUGS (8)
  1. CYCLOPHOSPHAMIDE. [Suspect]
     Active Substance: CYCLOPHOSPHAMIDE
     Indication: HER-2 POSITIVE BREAST CANCER
     Dosage: DATE OF MOST RECENT DOSE OF CYCLOPHOSPHAMIDE (780 MG) PRIOR TO EVENT CHEST TIGHTNESS IN DISPUTE: 19/
     Route: 042
     Dates: start: 20160928
  2. 5-FLUOROURACIL [Suspect]
     Active Substance: FLUOROURACIL
     Indication: HER-2 POSITIVE BREAST CANCER
     Dosage: DATE OF MOST RECENT DOSE OF 5-FLUOROURACIL (780 MG) PRIOR TO EVENT CHEST TIGHTNESS IN DISPUTE: 19/OC
     Route: 042
     Dates: start: 20160928
  3. EPIRUBICIN HYDROCHLORIDE. [Suspect]
     Active Substance: EPIRUBICIN HYDROCHLORIDE
     Indication: HER-2 POSITIVE BREAST CANCER
     Dosage: DATE OF MOST RECENT DOSE OF EPIRUBICIN (140 MG) PRIOR TO EVENT CHEST TIGHTNESS IN DISPUTE: 19/OCT/20
     Route: 042
     Dates: start: 20160928
  4. TRASTUZUMAB [Suspect]
     Active Substance: TRASTUZUMAB
     Indication: HER-2 POSITIVE BREAST CANCER
     Dosage: LOADING DOSE
     Route: 042
     Dates: start: 20160615, end: 20160615
  5. TRASTUZUMAB [Suspect]
     Active Substance: TRASTUZUMAB
     Dosage: DATE OF MOST RECENT DOSE OF TRASTUZUMAB PRIOR TO EVENT CHEST TIGHTNESS IN DISPUTE:17/AUG/2016
     Route: 042
  6. PLACEBO [Suspect]
     Active Substance: UNSPECIFIED INGREDIENT
     Indication: HER-2 POSITIVE BREAST CANCER
     Dosage: LOADING DOSE, CYCLE 1
     Route: 042
     Dates: start: 20160615, end: 20160615
  7. PLACEBO [Suspect]
     Active Substance: UNSPECIFIED INGREDIENT
     Dosage: DATE OF MOST RECENT DOSE OF PERTUZUMAB PRIOR TO EVENT CHEST TIGHTNESS IN DISPUTE: 17/AUG/2016, CYCLE
     Route: 042
  8. DOCETAXEL. [Suspect]
     Active Substance: DOCETAXEL
     Indication: HER-2 POSITIVE BREAST CANCER
     Dosage: DATE OF MOST RECENT DOSE OF DOCETAXEL PRIOR TO EVENT CHEST TIGHTNESS IN DISPUTE: 17/AUG/2016
     Route: 042
     Dates: start: 20160615

REACTIONS (1)
  - Chest discomfort [Recovered/Resolved]

NARRATIVE: CASE EVENT DATE: 20161019
